FAERS Safety Report 10946280 (Version 2)
Quarter: 2015Q2

REPORT INFORMATION
  Report Type: Spontaneous
  Country: US (occurrence: US)
  Receive Date: 20150323
  Receipt Date: 20150428
  Transmission Date: 20150821
  Serious: Yes (Death)
  Sender: FDA-Public Use
  Company Number: US-INCYTE CORPORATION-2015IN001162

PATIENT
  Age: 71 Year
  Sex: Female
  Weight: 68.93 kg

DRUGS (5)
  1. JAKAFI [Suspect]
     Active Substance: RUXOLITINIB
     Indication: MYELOFIBROSIS
     Dosage: 20 MG, BID
     Route: 048
     Dates: start: 20150225, end: 201503
  2. GABAPENTIN. [Concomitant]
     Active Substance: GABAPENTIN
  3. OXYCODONE [Concomitant]
     Active Substance: OXYCODONE
  4. WARFARIN [Suspect]
     Active Substance: WARFARIN
  5. ASPIRIN. [Concomitant]
     Active Substance: ASPIRIN

REACTIONS (1)
  - Subdural haemorrhage [Fatal]

NARRATIVE: CASE EVENT DATE: 20150317
